FAERS Safety Report 4380439-3 (Version None)
Quarter: 2004Q2

REPORT INFORMATION
  Report Type: 
  Country: None (occurrence: None)
  Receive Date: 20040614
  Receipt Date: 20040528
  Transmission Date: 20050107
  Serious: Yes (Hospitalization)
  Sender: FDA-Public Use
  Company Number: 2004207473SE

PATIENT
  Age: 72 Year
  Sex: Female
  Weight: 84 kg

DRUGS (24)
  1. ZAVEDOS (IDARUBICIN HYDROCHLORIDE) POWDER, STERILE [Suspect]
     Indication: ACUTE MYELOID LEUKAEMIA
     Dosage: SEE IMAGE
     Route: 042
     Dates: start: 20040129, end: 20040130
  2. ZAVEDOS (IDARUBICIN HYDROCHLORIDE) POWDER, STERILE [Suspect]
     Indication: ACUTE MYELOID LEUKAEMIA
     Dosage: SEE IMAGE
     Route: 042
     Dates: start: 20040129, end: 20040201
  3. ZAVEDOS (IDARUBICIN HYDROCHLORIDE) POWDER, STERILE [Suspect]
     Indication: ACUTE MYELOID LEUKAEMIA
     Dosage: SEE IMAGE
     Route: 042
     Dates: start: 20040225, end: 20040226
  4. ZAVEDOS (IDARUBICIN HYDROCHLORIDE) POWDER, STERILE [Suspect]
     Indication: ACUTE MYELOID LEUKAEMIA
     Dosage: SEE IMAGE
     Route: 042
     Dates: start: 20040225, end: 20040228
  5. ZAVEDOS (IDARUBICIN HYDROCHLORIDE) POWDER, STERILE [Suspect]
     Indication: ACUTE MYELOID LEUKAEMIA
     Dosage: SEE IMAGE
     Route: 042
     Dates: start: 20040325, end: 20040325
  6. ZAVEDOS (IDARUBICIN HYDROCHLORIDE) POWDER, STERILE [Suspect]
     Indication: ACUTE MYELOID LEUKAEMIA
     Dosage: SEE IMAGE
     Route: 042
     Dates: start: 20040428, end: 20040428
  7. ZAVEDOS (IDARUBICIN HYDROCHLORIDE) POWDER, STERILE [Suspect]
     Indication: ACUTE MYELOID LEUKAEMIA
     Dosage: SEE IMAGE
     Route: 042
     Dates: start: 20040428, end: 20040502
  8. CYTARABINE PHARMACIA (CYTARABINE)SOLUTION STERILE [Suspect]
     Indication: ACUTE MYELOID LEUKAEMIA
     Dosage: 400 MG, BID, CYCLE 3, IV
     Route: 042
     Dates: start: 20040225, end: 20040228
  9. CYTARABINE PHARMACIA (CYTARABINE)SOLUTION STERILE [Suspect]
     Indication: ACUTE MYELOID LEUKAEMIA
     Dosage: 400 MG, BID, CYCLE 3, IV
     Route: 042
     Dates: start: 20040325, end: 20040329
  10. CYTARABINE PHARMACIA (CYTARABINE)SOLUTION STERILE [Suspect]
     Indication: ACUTE MYELOID LEUKAEMIA
     Dosage: 400 MG, BID, CYCLE 3, IV
     Route: 042
     Dates: start: 20040428, end: 20040502
  11. FLUCONAZOLE [Suspect]
     Indication: PROPHYLAXIS
     Dosage: 400 MG, QD, CYCLE 3, ORAL
     Route: 048
     Dates: start: 20040213, end: 20040223
  12. FLUCONAZOLE [Suspect]
     Indication: PROPHYLAXIS
     Dosage: 400 MG, QD, CYCLE 3, ORAL
     Route: 048
     Dates: start: 20040301, end: 20040324
  13. FLUCONAZOLE [Suspect]
     Indication: PROPHYLAXIS
     Dosage: 400 MG, QD, CYCLE 3, ORAL
     Route: 048
     Dates: start: 20040331, end: 20040410
  14. FLUCONAZOLE [Suspect]
     Indication: PROPHYLAXIS
     Dosage: 400 MG, QD, CYCLE 3, ORAL
     Route: 048
     Dates: start: 20040412, end: 20040422
  15. ACYCLOVIR [Concomitant]
  16. LOSARTAN POTASSIUM W/HYDROCHLOROTHIAZIDE [Concomitant]
  17. LASIX [Concomitant]
     Dosage: \
  18. ROFECOXIB [Concomitant]
  19. PRIMPERAN INJ [Concomitant]
  20. INSULATARD NPH HUMAN [Concomitant]
  21. INSULINS AND ANALOGUES [Concomitant]
  22. FLUCONAZOLE [Suspect]
     Dosage: 400 MG, QD, CYCLE 1, ORAL
     Route: 048
     Dates: start: 20040213, end: 20040223
  23. FLUCONAZOLE [Suspect]
     Dosage: 400 MG, QD, CYCLE 3, ORAL
     Route: 048
     Dates: start: 20040412, end: 20040422
  24. FLUCONAZOLE [Suspect]
     Dosage: 400 MG, QD, CYCLE 2, ORAL
     Route: 048
     Dates: start: 20040301, end: 20040324

REACTIONS (5)
  - FEBRILE NEUTROPENIA [None]
  - HYPERSENSITIVITY [None]
  - KLEBSIELLA BACTERAEMIA [None]
  - TRANSFUSION REACTION [None]
  - TREATMENT NONCOMPLIANCE [None]
